FAERS Safety Report 7904795-1 (Version None)
Quarter: 2011Q4

REPORT INFORMATION
  Report Type: 
  Country: None (occurrence: None)
  Receive Date: 20111109
  Receipt Date: 20111027
  Transmission Date: 20120403
  Serious: Yes (Hospitalization, Other)
  Sender: FDA-Public Use
  Company Number: PHEH2011US06096

PATIENT
  Sex: Male

DRUGS (5)
  1. STEROIDS NOS [Concomitant]
     Indication: PNEUMONIA
  2. TEGRETOL [Suspect]
     Dosage: 6 DF, UNK
  3. WELLBUTRIN [Concomitant]
     Dosage: 2 DF, UNK
  4. BENADRYL [Concomitant]
     Indication: ARTHROPOD BITE
  5. KLONOPIN [Concomitant]
     Indication: SLEEP DISORDER
     Dosage: 4 DF, UNK

REACTIONS (4)
  - PNEUMONIA VIRAL [None]
  - LYMPHOMA [None]
  - WEIGHT DECREASED [None]
  - ORGANISING PNEUMONIA [None]
